FAERS Safety Report 9286358 (Version 1)
Quarter: 2013Q2

REPORT INFORMATION
  Report Type: Spontaneous
  Country: US (occurrence: US)
  Receive Date: 20130513
  Receipt Date: 20130513
  Transmission Date: 20140414
  Serious: No
  Sender: FDA-Public Use
  Company Number: US-BAYER-2013-059317

PATIENT
  Age: 81 Year
  Sex: Male
  Weight: 78.46 kg

DRUGS (6)
  1. ALEVE CAPLET [Suspect]
     Indication: ARTHRITIS
     Dosage: 1 DF, QD
     Route: 048
     Dates: start: 201301
  2. ASPIRIN [Concomitant]
  3. FLOMAX [Concomitant]
  4. PROSCAR [Concomitant]
  5. ATORVASTATIN [Concomitant]
  6. METFORMIN [Concomitant]

REACTIONS (1)
  - Incorrect drug administration duration [None]
